FAERS Safety Report 6220331-2 (Version None)
Quarter: 2009Q2

REPORT INFORMATION
  Report Type: 
  Country: None (occurrence: None)
  Receive Date: 20090610
  Receipt Date: 20090601
  Transmission Date: 20091009
  Serious: Yes (Hospitalization, Other)
  Sender: FDA-Public Use
  Company Number: US-CELGENEUS-163-21880-09010299

PATIENT
  Age: 64 Year
  Sex: Male
  Weight: 75.4 kg

DRUGS (6)
  1. REVLIMID [Suspect]
     Route: 048
     Dates: start: 20081119, end: 20090105
  2. SGN-33 [Suspect]
     Dates: start: 20081119, end: 20081230
  3. NEXIUM [Concomitant]
     Indication: DRUG USE FOR UNKNOWN INDICATION
     Route: 065
  4. INDOMETHACIN [Concomitant]
     Indication: DRUG USE FOR UNKNOWN INDICATION
     Route: 065
  5. CIPRO [Concomitant]
     Route: 065
  6. DIFLUCAN [Concomitant]
     Route: 065

REACTIONS (4)
  - ATRIAL FIBRILLATION [None]
  - OLIGURIA [None]
  - PERICARDIAL EFFUSION [None]
  - PLEURITIC PAIN [None]
